FAERS Safety Report 9174302 (Version 1)
Quarter: 2013Q1

REPORT INFORMATION
  Report Type: Spontaneous
  Country: DK (occurrence: DK)
  Receive Date: 20130320
  Receipt Date: 20130320
  Transmission Date: 20140127
  Serious: Yes (Life-Threatening)
  Sender: FDA-Public Use
  Company Number: DK-JNJFOC-20130308577

PATIENT
  Age: 85 Year
  Sex: Female

DRUGS (10)
  1. XARELTO [Suspect]
     Indication: KNEE ARTHROPLASTY
     Route: 048
     Dates: start: 20130219
  2. XARELTO [Suspect]
     Indication: THROMBOSIS PROPHYLAXIS
     Route: 048
     Dates: start: 20130219
  3. ACETYLSALICYLIC ACID [Suspect]
     Indication: THROMBOSIS PROPHYLAXIS
     Route: 048
     Dates: end: 20130223
  4. PAMOL [Concomitant]
     Route: 065
  5. SIMVASTATIN [Concomitant]
     Route: 065
  6. POLYVINYL ALCOHOL [Concomitant]
     Route: 065
  7. CONTALGIN [Concomitant]
     Route: 065
  8. CITALOPRAM [Concomitant]
     Route: 065
  9. PANTOLOC [Concomitant]
     Route: 065
  10. SPIRIX [Concomitant]
     Route: 065

REACTIONS (1)
  - Anaemia [Not Recovered/Not Resolved]
